FAERS Safety Report 16569547 (Version 1)
Quarter: 2019Q3

REPORT INFORMATION
  Report Type: Spontaneous
  Country: US (occurrence: US)
  Receive Date: 20190715
  Receipt Date: 20190715
  Transmission Date: 20191004
  Serious: Yes (Other)
  Sender: FDA-Public Use
  Company Number: US-ROCHE-2354280

PATIENT
  Sex: Female

DRUGS (2)
  1. XOLAIR [Suspect]
     Active Substance: OMALIZUMAB
     Indication: MECHANICAL URTICARIA
     Dosage: IS THERAPY ONGOING: NO
     Route: 058
     Dates: start: 20160506
  2. STELARA [Suspect]
     Active Substance: USTEKINUMAB
     Indication: CROHN^S DISEASE
     Dosage: IS THERAPY ONGOING: YES
     Route: 058
     Dates: start: 20181127

REACTIONS (2)
  - Cardiac failure congestive [Unknown]
  - Condition aggravated [Unknown]
